FAERS Safety Report 4863304-4 (Version None)
Quarter: 2005Q4

REPORT INFORMATION
  Report Type: 
  Country: None (occurrence: None)
  Receive Date: 20051222
  Receipt Date: 20051213
  Transmission Date: 20060501
  Serious: Yes (Hospitalization)
  Sender: FDA-Public Use
  Company Number: US-JNJFOC-20040505053

PATIENT
  Sex: Female

DRUGS (49)
  1. INFLIXIMAB [Suspect]
     Route: 042
  2. INFLIXIMAB [Suspect]
     Indication: RHEUMATOID ARTHRITIS
     Route: 042
  3. ACTONEL [Concomitant]
  4. ULTRACET [Concomitant]
     Dosage: 37.5-325 MG TABLET AS NEEDED
  5. BEXTRA [Concomitant]
  6. NEURONTIN [Concomitant]
  7. METHOTREXATE [Concomitant]
  8. FOLIC ACID [Concomitant]
  9. CALCIUM CARBONATE/VITAMIN D [Concomitant]
     Dosage: 500-200 MG-IU TABLETS, 2 DAILY
  10. PLAQUENIL [Concomitant]
  11. ATENOLOL [Concomitant]
  12. ASPIRIN [Concomitant]
  13. VITAMIN E [Concomitant]
  14. MULTI-VITAMIN [Concomitant]
  15. MULTI-VITAMIN [Concomitant]
  16. MULTI-VITAMIN [Concomitant]
  17. MULTI-VITAMIN [Concomitant]
  18. MULTI-VITAMIN [Concomitant]
  19. MULTI-VITAMIN [Concomitant]
  20. MULTI-VITAMIN [Concomitant]
  21. MULTI-VITAMIN [Concomitant]
  22. DIFLUCAN [Concomitant]
  23. TYLENOL [Concomitant]
  24. TYLENOL [Concomitant]
  25. MILK OF MAGNESIA TAB [Concomitant]
  26. MILK OF MAGNESIA TAB [Concomitant]
  27. DESYREL [Concomitant]
  28. DESYREL [Concomitant]
  29. FORTEO [Concomitant]
     Dosage: 750 MCG/3 ML SOLN
  30. PROTONIX [Concomitant]
     Dosage: EC
  31. ALDOMET [Concomitant]
  32. COMBIVENT [Concomitant]
  33. COMBIVENT [Concomitant]
     Dosage: 103-18 MCG ACT AEROSOL
  34. PHENERGAN [Concomitant]
     Dosage: IV
  35. PHENERGAN [Concomitant]
     Dosage: TABLETS
  36. ULTRAM [Concomitant]
     Dosage: EVERY SIX HOURS PRN
     Route: 048
  37. DURAGESIC-100 [Concomitant]
     Dosage: 100 MCG/HR PATCH 72
  38. MIRALAX [Concomitant]
     Dosage: ONCE DAILY
  39. ZOFRAN [Concomitant]
     Dosage: 6 DAILY AS NEEDED
  40. MORPHINE [Concomitant]
     Dosage: 1-2 MG Q4H
  41. HYDROCODONE BITARTRATE + ACETAMINOPHEN [Concomitant]
     Dosage: 5-500 MG
  42. HYDROCODONE BITARTRATE + ACETAMINOPHEN [Concomitant]
     Dosage: 10-500 MG
  43. PERCOCET [Concomitant]
  44. PERCOCET [Concomitant]
  45. MACROBID [Concomitant]
  46. POTASSIUM ACETATE [Concomitant]
     Route: 042
  47. NYSTATIN [Concomitant]
     Dosage: 100000 U/ML
     Route: 042
  48. CEPACOL [Concomitant]
  49. OXYCONTIN [Concomitant]

REACTIONS (12)
  - CONSTIPATION [None]
  - HAEMATOCRIT DECREASED [None]
  - HAEMOGLOBIN DECREASED [None]
  - LOSS OF CONSCIOUSNESS [None]
  - NAUSEA [None]
  - OESOPHAGEAL CANDIDIASIS [None]
  - OSTEOPOROSIS [None]
  - OSTEOPOROTIC FRACTURE [None]
  - PYURIA [None]
  - SPINAL COMPRESSION FRACTURE [None]
  - URINARY TRACT INFECTION [None]
  - VOMITING [None]
